FAERS Safety Report 4408200-1 (Version None)
Quarter: 2004Q3

REPORT INFORMATION
  Report Type: 
  Country: None (occurrence: None)
  Receive Date: 20040722
  Receipt Date: 20040708
  Transmission Date: 20050211
  Serious: No
  Sender: FDA-Public Use
  Company Number: FABR-10612

PATIENT
  Age: 54 Year
  Sex: Male
  Weight: 110 kg

DRUGS (7)
  1. FABRAZYME [Suspect]
     Indication: FABRY'S DISEASE
     Dosage: 105 MG Q2WKS IV
     Route: 042
     Dates: start: 20040406
  2. LISI-PUREN (LISINOPRIL) [Concomitant]
  3. ASS (ASPIRIN) [Concomitant]
  4. SYMBICORT [Concomitant]
  5. PARACETAMOL [Concomitant]
  6. CLEMASTINE FUMARATE [Concomitant]
  7. RANITIDINE [Concomitant]

REACTIONS (5)
  - BLOOD PRESSURE DECREASED [None]
  - DIZZINESS [None]
  - FEELING ABNORMAL [None]
  - NAUSEA [None]
  - PALLOR [None]
